FAERS Safety Report 5642766-9 (Version None)
Quarter: 2008Q1

REPORT INFORMATION
  Report Type: 
  Country: None (occurrence: None)
  Receive Date: 20080228
  Receipt Date: 20080218
  Transmission Date: 20080703
  Serious: Yes (Other)
  Sender: FDA-Public Use
  Company Number: FR-AMGEN-US254232

PATIENT
  Sex: Female
  Weight: 75 kg

DRUGS (7)
  1. ENBREL [Suspect]
     Indication: RHEUMATOID ARTHRITIS
     Dosage: 50 MG TOTAL WEEKLY
     Route: 058
     Dates: start: 20050124, end: 20070910
  2. INIPOMP [Concomitant]
     Route: 065
     Dates: start: 20050101
  3. TAHOR [Concomitant]
     Dosage: UNKNOWN
     Route: 065
     Dates: start: 20060101
  4. DOLIPRANE [Concomitant]
     Dosage: 3 G TOTAL DAILY
     Route: 065
     Dates: start: 20000101
  5. PLAVIX [Concomitant]
     Dosage: UNKNOWN
     Route: 065
     Dates: start: 20060101
  6. CORTANCYL [Concomitant]
     Route: 065
     Dates: start: 20050101, end: 20070901
  7. OROCAL VITAMIN D [Concomitant]
     Dosage: 1 G TOTAL DAILY
     Route: 065
     Dates: start: 20030101

REACTIONS (3)
  - BRONCHIOLITIS [None]
  - EMPHYSEMA [None]
  - LYMPHOCYTIC INFILTRATION [None]
